FAERS Safety Report 12065457 (Version 1)
Quarter: 2016Q1

REPORT INFORMATION
  Report Type: Spontaneous
  Country: US (occurrence: US)
  Receive Date: 20160210
  Receipt Date: 20160210
  Transmission Date: 20160526
  Serious: No
  Sender: FDA-Public Use
  Company Number: US-ALLERGAN-1510413US

PATIENT
  Age: 70 Year
  Sex: Female
  Weight: 72.56 kg

DRUGS (2)
  1. BOTOX COSMETIC [Suspect]
     Active Substance: ONABOTULINUMTOXINA
     Indication: SKIN WRINKLING
     Dosage: 30 UNITS, SINGLE
     Route: 030
     Dates: start: 20150529, end: 20150529
  2. BOTOX COSMETIC [Suspect]
     Active Substance: ONABOTULINUMTOXINA
     Indication: SKIN WRINKLING

REACTIONS (4)
  - Periorbital oedema [Not Recovered/Not Resolved]
  - Swelling face [Not Recovered/Not Resolved]
  - Pruritus [Not Recovered/Not Resolved]
  - Eye swelling [Not Recovered/Not Resolved]

NARRATIVE: CASE EVENT DATE: 20150530
